FAERS Safety Report 6203909-1 (Version None)
Quarter: 2009Q2

REPORT INFORMATION
  Report Type: 
  Country: None (occurrence: None)
  Receive Date: 20090527
  Receipt Date: 20090520
  Transmission Date: 20091009
  Serious: Yes (Life-Threatening, Disabling, Other)
  Sender: FDA-Public Use
  Company Number: A0782372A

PATIENT
  Age: 61 Year
  Sex: Male
  Weight: 98.2 kg

DRUGS (2)
  1. AVANDIA [Suspect]
     Indication: DIABETES MELLITUS
     Dosage: 4MG TWICE PER DAY
     Route: 048
     Dates: start: 20040101, end: 20070501
  2. ACTOS [Suspect]
     Indication: DIABETES MELLITUS
     Dosage: 45MG PER DAY
     Route: 048
     Dates: start: 20070501, end: 20090316

REACTIONS (3)
  - CEREBROVASCULAR ACCIDENT [None]
  - FALL [None]
  - TIBIA FRACTURE [None]
